FAERS Safety Report 17997103 (Version 1)
Quarter: 2020Q3

REPORT INFORMATION
  Report Type: Spontaneous
  Country: US (occurrence: US)
  Receive Date: 20200708
  Receipt Date: 20200708
  Transmission Date: 20201103
  Serious: Yes (Life-Threatening, Hospitalization)
  Sender: FDA-Public Use
  Company Number: US-MYLANLABS-2020M1061779

PATIENT
  Age: 72 Year
  Sex: Male

DRUGS (1)
  1. HEPARIN [Suspect]
     Active Substance: HEPARIN SODIUM
     Indication: ACUTE MYOCARDIAL INFARCTION
     Dosage: UNK
     Route: 042

REACTIONS (5)
  - Adrenal haematoma [Recovering/Resolving]
  - Heparin-induced thrombocytopenia [Recovering/Resolving]
  - Shock [Recovering/Resolving]
  - Adrenal haemorrhage [Recovering/Resolving]
  - Primary adrenal insufficiency [Recovering/Resolving]
